FAERS Safety Report 6567993-8 (Version None)
Quarter: 2010Q1

REPORT INFORMATION
  Report Type: 
  Country: None (occurrence: None)
  Receive Date: 20100203
  Receipt Date: 20100122
  Transmission Date: 20100710
  Serious: Yes (Hospitalization, Other)
  Sender: FDA-Public Use
  Company Number: JP-PFIZER INC-2009294017

PATIENT
  Age: 70 Year
  Sex: Male

DRUGS (6)
  1. SELARA [Suspect]
     Indication: CARDIAC FAILURE
     Dosage: 25 MG, DAILY
     Route: 048
     Dates: start: 20090401, end: 20091001
  2. ASPIRIN [Concomitant]
     Dosage: UNK
     Route: 048
     Dates: start: 20090401
  3. CRESTOR [Concomitant]
     Dosage: UNK
     Route: 048
     Dates: start: 20090401
  4. ZETIA [Concomitant]
     Dosage: UNK
     Route: 048
     Dates: start: 20090401
  5. ARTIST [Concomitant]
     Dosage: UNK
     Route: 048
     Dates: start: 20090401
  6. PLAVIX [Concomitant]
     Dosage: UNK
     Route: 048
     Dates: start: 20090401

REACTIONS (4)
  - ABDOMINAL DISCOMFORT [None]
  - ALBUMIN URINE [None]
  - DECREASED APPETITE [None]
  - DIABETES MELLITUS [None]
